FAERS Safety Report 7625305-2 (Version None)
Quarter: 2011Q3

REPORT INFORMATION
  Report Type: 
  Country: None (occurrence: None)
  Receive Date: 20110721
  Receipt Date: 20110714
  Transmission Date: 20111222
  Serious: No
  Sender: FDA-Public Use
  Company Number: US-PFIZER INC-2011160580

PATIENT
  Sex: Male

DRUGS (4)
  1. SUTENT [Suspect]
     Dosage: 50 MG, EVERY DAY FOR 28 DAYS ON 14 DAYS OFF
     Route: 048
  2. MS CONTIN [Concomitant]
     Dosage: 60 MG, UNK
  3. MOTRIN IB [Concomitant]
     Dosage: 200 MG, UNK
  4. AMITRIPTYLINE [Concomitant]
     Dosage: 10 MG, UNK

REACTIONS (2)
  - EAR DISCOMFORT [None]
  - TONGUE DISORDER [None]
